FAERS Safety Report 7247808-5 (Version None)
Quarter: 2011Q1

REPORT INFORMATION
  Report Type: 
  Country: None (occurrence: None)
  Receive Date: 20110127
  Receipt Date: 20110120
  Transmission Date: 20110831
  Serious: Yes (Other)
  Sender: FDA-Public Use
  Company Number: FR-PFIZER INC-2011013861

PATIENT

DRUGS (2)
  1. SIROLIMUS [Interacting]
     Dosage: UNK
  2. TAHOR [Suspect]
     Dosage: UNK

REACTIONS (2)
  - DRUG INTERACTION [None]
  - PNEUMONIA [None]
